FAERS Safety Report 19685116 (Version 1)
Quarter: 2021Q3

REPORT INFORMATION
  Report Type: Spontaneous
  Country: US (occurrence: US)
  Receive Date: 20210811
  Receipt Date: 20210811
  Transmission Date: 20211014
  Serious: Yes (Life-Threatening)
  Sender: FDA-Public Use
  Company Number: None

PATIENT
  Age: 66 Year
  Sex: Male
  Weight: 85.14 kg

DRUGS (3)
  1. VEKLURY [Suspect]
     Active Substance: REMDESIVIR
     Indication: COVID-19 PNEUMONIA
     Dosage: ?          OTHER FREQUENCY:LOADING DOSE;?
     Route: 042
     Dates: start: 20210808, end: 20210808
  2. NORMAL SALINE [Concomitant]
     Active Substance: SODIUM CHLORIDE
     Dates: start: 20210808, end: 20210808
  3. STERILE WATER [Concomitant]
     Active Substance: WATER
     Dates: start: 20210808, end: 20210808

REACTIONS (2)
  - Hypersensitivity [None]
  - Angioedema [None]

NARRATIVE: CASE EVENT DATE: 20210808
